FAERS Safety Report 6879988-5 (Version None)
Quarter: 2010Q3

REPORT INFORMATION
  Report Type: 
  Country: None (occurrence: None)
  Receive Date: 20100728
  Receipt Date: 20100716
  Transmission Date: 20110219
  Serious: Yes (Other)
  Sender: FDA-Public Use
  Company Number: PHHY2010BR47054

PATIENT
  Age: 35 Year
  Sex: Female

DRUGS (2)
  1. LEPONEX [Suspect]
     Indication: SCHIZOPHRENIA
     Dosage: 100 MG, UNK
     Dates: start: 20091001
  2. CARBOLITIUM [Concomitant]
     Indication: SCHIZOPHRENIA
     Dosage: UNK

REACTIONS (2)
  - CHRONIC SINUSITIS [None]
  - NASAL OPERATION [None]
